FAERS Safety Report 13147996 (Version 5)
Quarter: 2017Q1

REPORT INFORMATION
  Report Type: Spontaneous
  Country: IT (occurrence: IT)
  Receive Date: 20170125
  Receipt Date: 20170214
  Transmission Date: 20170428
  Serious: Yes (Life-Threatening, Other)
  Sender: FDA-Public Use
  Company Number: IT-009507513-1701ITA010706

PATIENT
  Age: 66 Year
  Sex: Male

DRUGS (5)
  1. IVEMEND [Suspect]
     Active Substance: FOSAPREPITANT DIMEGLUMINE
     Indication: PROPHYLAXIS OF NAUSEA AND VOMITING
     Dosage: 150 MG, QD, POWDER FOR SOLUTION FOR INFUSION
     Route: 042
     Dates: start: 20161223, end: 20161223
  2. CONGESCOR [Concomitant]
     Active Substance: BISOPROLOL
     Dosage: 2.5 MG UNK
  3. SPORANOX [Suspect]
     Active Substance: ITRACONAZOLE
     Indication: MUCOSITIS MANAGEMENT
     Dosage: 10 MG/ML ORAL SOLUTION
     Dates: start: 20161221, end: 20161223
  4. PALEXIA [Concomitant]
     Active Substance: TAPENTADOL HYDROCHLORIDE
     Dosage: FILM COATED
     Dates: start: 20161220
  5. CARDIOASPIRIN [Concomitant]
     Active Substance: ASPIRIN

REACTIONS (5)
  - Loss of consciousness [Recovered/Resolved]
  - Hypotension [Recovered/Resolved]
  - Anaphylactic shock [Recovered/Resolved]
  - Syncope [Unknown]
  - Paraesthesia [Unknown]

NARRATIVE: CASE EVENT DATE: 20161223
